FAERS Safety Report 15258669 (Version 1)
Quarter: 2018Q3

REPORT INFORMATION
  Report Type: Report from Study
  Country: DE (occurrence: DE)
  Receive Date: 20180809
  Receipt Date: 20180809
  Transmission Date: 20181010
  Serious: Yes (Hospitalization, Other)
  Sender: FDA-Public Use
  Company Number: DE-TEVA-2018-DE-936264

PATIENT
  Sex: Female
  Weight: 56 kg

DRUGS (35)
  1. CARFILZOMIB [Suspect]
     Active Substance: CARFILZOMIB
     Route: 042
     Dates: start: 20171121, end: 20171122
  2. CARFILZOMIB [Suspect]
     Active Substance: CARFILZOMIB
     Route: 042
     Dates: start: 20171228
  3. CARFILZOMIB [Suspect]
     Active Substance: CARFILZOMIB
     Route: 042
     Dates: start: 20171212, end: 20171213
  4. SILAPO [Concomitant]
     Dosage: 2000 UNK DAILY
     Dates: start: 20171004, end: 20171007
  5. CARFILZOMIB [Suspect]
     Active Substance: CARFILZOMIB
     Route: 042
     Dates: start: 20171114, end: 20171115
  6. ALLOPURINOL RATIOPHARM [Concomitant]
     Indication: PROPHYLAXIS
     Dosage: 150 MILLIGRAM DAILY;
     Dates: start: 20161108
  7. DEXAMETHASONE. [Suspect]
     Active Substance: DEXAMETHASONE
     Route: 065
     Dates: start: 20171107, end: 20171108
  8. DEXAMETHASONE. [Suspect]
     Active Substance: DEXAMETHASONE
     Route: 065
     Dates: start: 20171212, end: 20171213
  9. DEXAMETHASONE. [Suspect]
     Active Substance: DEXAMETHASONE
     Route: 065
     Dates: start: 20170919, end: 20170920
  10. XIPAMID RATIOPHARM [Concomitant]
     Indication: PROPHYLAXIS
     Dosage: 10 MILLIGRAM DAILY;
     Dates: start: 20161108
  11. DEXAMETHASONE. [Suspect]
     Active Substance: DEXAMETHASONE
     Dosage: 20 MG, UNK
     Route: 065
     Dates: start: 20171121, end: 20171122
  12. DEXAMETHASONE. [Suspect]
     Active Substance: DEXAMETHASONE
     Route: 065
     Dates: start: 20171227, end: 20171228
  13. CARFILZOMIB [Suspect]
     Active Substance: CARFILZOMIB
     Route: 042
     Dates: start: 20171227
  14. CARFILZOMIB [Suspect]
     Active Substance: CARFILZOMIB
     Route: 042
     Dates: start: 20170926, end: 20170927
  15. DEXAMETHASONE. [Suspect]
     Active Substance: DEXAMETHASONE
     Route: 065
     Dates: start: 20171010, end: 20171011
  16. DEXAMETHASONE. [Suspect]
     Active Substance: DEXAMETHASONE
     Route: 065
     Dates: start: 20171003, end: 20171004
  17. DEXAMETHASONE. [Suspect]
     Active Substance: DEXAMETHASONE
     Route: 065
     Dates: start: 20171219, end: 20171220
  18. CARFILZOMIB [Suspect]
     Active Substance: CARFILZOMIB
     Route: 042
     Dates: start: 20171107, end: 20171108
  19. CARFILZOMIB [Suspect]
     Active Substance: CARFILZOMIB
     Route: 042
     Dates: start: 20171017, end: 20171018
  20. CARFILZOMIB [Suspect]
     Active Substance: CARFILZOMIB
     Route: 042
     Dates: start: 20170912, end: 20170913
  21. GRANISETRON RATIOPHARM [Concomitant]
     Indication: PROPHYLAXIS
     Dosage: 2 MG, AS NECESSARY
     Dates: start: 20170908
  22. DEXAMETHASONE. [Suspect]
     Active Substance: DEXAMETHASONE
     Route: 065
     Dates: start: 20170912, end: 20170913
  23. ATORVASTATIN RATIOPHARM [Concomitant]
     Active Substance: ATORVASTATIN
     Indication: PROPHYLAXIS
     Dosage: 60 MILLIGRAM DAILY;
     Route: 065
     Dates: start: 20161108
  24. DOXAZOSIN RATIOPHARM [Concomitant]
     Indication: PROPHYLAXIS
     Dosage: 2 MILLIGRAM DAILY;
     Dates: start: 20161108
  25. CANDESARTAN RATIOPHARM [Concomitant]
     Indication: PROPHYLAXIS
     Dosage: 32 MILLIGRAM DAILY;
     Dates: start: 20161108
  26. DEXAMETHASONE. [Suspect]
     Active Substance: DEXAMETHASONE
     Route: 065
     Dates: start: 20171017, end: 20171018
  27. DEXAMETHASONE. [Suspect]
     Active Substance: DEXAMETHASONE
     Route: 065
     Dates: start: 20170926, end: 20170927
  28. CARFILZOMIB [Suspect]
     Active Substance: CARFILZOMIB
     Dosage: 56 MG/M2, UNK
     Route: 042
     Dates: start: 20170919, end: 20170920
  29. CARFILZOMIB [Suspect]
     Active Substance: CARFILZOMIB
     Route: 042
     Dates: start: 20171024, end: 20171025
  30. TORASEMID BETA [Concomitant]
     Indication: PROPHYLAXIS
     Dosage: 15 MILLIGRAM DAILY;
     Dates: start: 20161108
  31. DEXAMETHASONE. [Suspect]
     Active Substance: DEXAMETHASONE
     Route: 065
     Dates: start: 20171114, end: 20171115
  32. DEXAMETHASONE. [Suspect]
     Active Substance: DEXAMETHASONE
     Route: 065
     Dates: start: 20171024, end: 20171025
  33. CARFILZOMIB [Suspect]
     Active Substance: CARFILZOMIB
     Route: 042
     Dates: start: 20171219, end: 20171219
  34. CARFILZOMIB [Suspect]
     Active Substance: CARFILZOMIB
     Route: 042
     Dates: start: 20171010, end: 20171011
  35. L?THYROXIN [Concomitant]
     Active Substance: LEVOTHYROXINE SODIUM
     Indication: PROPHYLAXIS
     Dosage: 75 MILLIGRAM DAILY;
     Dates: start: 20161108

REACTIONS (1)
  - Cerebrovascular accident [Not Recovered/Not Resolved]

NARRATIVE: CASE EVENT DATE: 20180129
